FAERS Safety Report 6192313-0 (Version None)
Quarter: 2009Q2

REPORT INFORMATION
  Report Type: 
  Country: None (occurrence: None)
  Receive Date: 20090515
  Receipt Date: 20090511
  Transmission Date: 20091009
  Serious: Yes (Other)
  Sender: FDA-Public Use
  Company Number: US-MERCK-0905USA01291

PATIENT
  Age: 64 Year
  Sex: Male

DRUGS (1)
  1. JANUVIA [Suspect]
     Indication: TYPE 2 DIABETES MELLITUS
     Route: 048
     Dates: start: 20080101

REACTIONS (6)
  - ADVERSE EVENT [None]
  - AURICULAR SWELLING [None]
  - DEAFNESS [None]
  - EAR PAIN [None]
  - PHARYNGEAL OEDEMA [None]
  - RHINORRHOEA [None]
